FAERS Safety Report 7584284-7 (Version None)
Quarter: 2011Q2

REPORT INFORMATION
  Report Type: 
  Country: None (occurrence: None)
  Receive Date: 20110630
  Receipt Date: 20110617
  Transmission Date: 20111010
  Serious: Yes (Other)
  Sender: FDA-Public Use
  Company Number: PHHY2011JP29050

PATIENT
  Age: 60 Year
  Sex: Female

DRUGS (5)
  1. ETHYL ICOSAPENTATE [Interacting]
     Dosage: UNK
     Route: 048
     Dates: end: 20110406
  2. IMIDAPRIL HYDROCHLORIDE [Concomitant]
     Route: 048
  3. CHOLESTEROL- AND TRIGLYCERIDE REDUCERS [Concomitant]
     Dosage: UNK
  4. EQUA [Suspect]
     Dosage: UNK
     Route: 048
  5. ALLOPURINOL [Suspect]
     Dosage: UNK
     Route: 048
     Dates: end: 20110406

REACTIONS (1)
  - BLOOD CREATINE PHOSPHOKINASE INCREASED [None]
